FAERS Safety Report 7571678-9 (Version None)
Quarter: 2011Q2

REPORT INFORMATION
  Report Type: 
  Country: None (occurrence: None)
  Receive Date: 20110624
  Receipt Date: 20110615
  Transmission Date: 20111010
  Serious: Yes (Other)
  Sender: FDA-Public Use
  Company Number: JP-MERCK-1106USA02700

PATIENT
  Age: 81 Year
  Sex: Female

DRUGS (2)
  1. JANUVIA [Suspect]
     Indication: DIABETES MELLITUS
     Route: 048
     Dates: start: 20110601, end: 20110601
  2. EQUA [Concomitant]
     Indication: DIABETES MELLITUS
     Route: 048
     Dates: end: 20110601

REACTIONS (1)
  - INTERSTITIAL LUNG DISEASE [None]
